FAERS Safety Report 7699852-1 (Version None)
Quarter: 2011Q3

REPORT INFORMATION
  Report Type: 
  Country: None (occurrence: None)
  Receive Date: 20110822
  Receipt Date: 20091224
  Transmission Date: 20111222
  Serious: No
  Sender: FDA-Public Use
  Company Number: 2009BI042144

PATIENT
  Age: 41 Year
  Sex: Female

DRUGS (1)
  1. TYSABRI [Suspect]
     Indication: MULTIPLE SCLEROSIS
     Route: 042
     Dates: start: 20090424, end: 20110301

REACTIONS (2)
  - MULTIPLE SCLEROSIS [None]
  - MEMORY IMPAIRMENT [None]
